FAERS Safety Report 8779063 (Version 1)
Quarter: 2012Q4

REPORT INFORMATION
  Report Type: 
  Country: US (occurrence: US)
  Receive Date: 20120912
  Receipt Date: 20120912
  Transmission Date: 20130627
  Serious: Yes (Hospitalization)
  Sender: FDA-Public Use
  Company Number: US-PFIZER INC-2012220373

PATIENT
  Age: 69 Year
  Sex: Male
  Weight: 92.52 kg

DRUGS (2)
  1. REVATIO [Suspect]
     Indication: PLEURAL EFFUSION
     Dosage: 20 mg, 3x/day
     Dates: start: 2012, end: 2012
  2. DALIRESP [Suspect]
     Indication: PLEURAL EFFUSION
     Dosage: UNK
     Dates: start: 2012, end: 2012

REACTIONS (3)
  - Pleural effusion [Recovered/Resolved]
  - Off label use [Unknown]
  - Weight decreased [Unknown]
